FAERS Safety Report 8969559 (Version 1)
Quarter: 2012Q4

REPORT INFORMATION
  Report Type: 
  Country: US (occurrence: US)
  Receive Date: 20121218
  Receipt Date: 20121218
  Transmission Date: 20130627
  Serious: Yes (Other)
  Sender: FDA-Public Use
  Company Number: US-BRISTOL-MYERS SQUIBB COMPANY-16600447

PATIENT
  Age: 63 Year
  Sex: Female
  Weight: 117.91 kg

DRUGS (4)
  1. ABILIFY [Suspect]
     Indication: PSYCHOTIC DISORDER
     Dates: start: 201002
  2. ABILIFY [Suspect]
     Indication: DEPRESSION
     Dates: start: 201002
  3. CYMBALTA [Suspect]
     Indication: DEPRESSION
  4. CYMBALTA [Suspect]
     Indication: PSYCHOTIC DISORDER

REACTIONS (1)
  - Diabetes mellitus [Unknown]
